FAERS Safety Report 8089743-9 (Version None)
Quarter: 2012Q1

REPORT INFORMATION
  Report Type: 
  Country: None (occurrence: None)
  Receive Date: 20120128
  Receipt Date: 20110629
  Transmission Date: 20120608
  Serious: No
  Sender: FDA-Public Use
  Company Number: US-ABBOTT-11P-163-0836100-00

PATIENT
  Sex: Female
  Weight: 54.48 kg

DRUGS (3)
  1. LIALDA [Concomitant]
     Indication: CROHN'S DISEASE
     Dates: start: 20110601
  2. HUMIRA [Suspect]
     Dates: start: 20110401, end: 20110401
  3. HUMIRA [Suspect]
     Indication: CROHN'S DISEASE
     Dates: start: 20110301, end: 20110301

REACTIONS (4)
  - SINUSITIS [None]
  - URINARY TRACT INFECTION [None]
  - FOLLICULITIS [None]
  - LYMPHADENOPATHY [None]
